FAERS Safety Report 14401269 (Version 1)
Quarter: 2018Q1

REPORT INFORMATION
  Report Type: Spontaneous
  Country: US (occurrence: US)
  Receive Date: 20180114
  Receipt Date: 20180114
  Transmission Date: 20180509
  Serious: Yes (Life-Threatening, Hospitalization)
  Sender: FDA-Public Use
  Company Number: None

PATIENT
  Age: 59 Year
  Sex: Male
  Weight: 89.04 kg

DRUGS (2)
  1. LEVOFLOXACIN. [Suspect]
     Active Substance: LEVOFLOXACIN
     Indication: ANAL ABSCESS
     Route: 048
     Dates: start: 20171026, end: 20171027
  2. METRONIDAZOLE. [Suspect]
     Active Substance: METRONIDAZOLE
     Indication: ANAL ABSCESS
     Route: 048
     Dates: start: 20171026, end: 20171027

REACTIONS (8)
  - Blood pressure systolic decreased [None]
  - Anaphylactic reaction [None]
  - Swelling face [None]
  - Pharyngeal oedema [None]
  - Headache [None]
  - Neck pain [None]
  - Dyspnoea [None]
  - Rash [None]

NARRATIVE: CASE EVENT DATE: 20171027
